FAERS Safety Report 11133210 (Version 5)
Quarter: 2019Q3

REPORT INFORMATION
  Report Type: Spontaneous
  Country: US (occurrence: US)
  Receive Date: 20150522
  Receipt Date: 20190716
  Transmission Date: 20191004
  Serious: Yes (Other)
  Sender: FDA-Public Use
  Company Number: US-PFIZER INC-2015113622

PATIENT
  Age: 69 Year
  Sex: Male
  Weight: 135 kg

DRUGS (2)
  1. LYRICA [Suspect]
     Active Substance: PREGABALIN
     Indication: NEURALGIA
     Dosage: 100 MG, 3X/DAY
     Route: 048
     Dates: end: 20180821
  2. LYRICA [Suspect]
     Active Substance: PREGABALIN
     Indication: NEUROPATHY PERIPHERAL

REACTIONS (5)
  - Gait inability [Unknown]
  - Limb discomfort [Unknown]
  - Feeling abnormal [Unknown]
  - Arthropathy [Unknown]
  - Speech disorder [Unknown]
